FAERS Safety Report 16341637 (Version 1)
Quarter: 2019Q2

REPORT INFORMATION
  Report Type: Report from Study
  Country: CN (occurrence: CN)
  Receive Date: 20190522
  Receipt Date: 20190522
  Transmission Date: 20190711
  Serious: Yes (Other)
  Sender: FDA-Public Use
  Company Number: CN-ROCHE-2316066

PATIENT

DRUGS (2)
  1. CAPECITABINE. [Suspect]
     Active Substance: CAPECITABINE
     Indication: RECTAL CANCER
     Route: 048
  2. TS-1 [Suspect]
     Active Substance: GIMERACIL\OTERACIL\TEGAFUR
     Indication: RECTAL CANCER
     Route: 048

REACTIONS (8)
  - Nausea [Recovering/Resolving]
  - Bone marrow failure [Recovering/Resolving]
  - Diarrhoea [Recovering/Resolving]
  - Cystitis [Recovering/Resolving]
  - Palmar-plantar erythrodysaesthesia syndrome [Recovering/Resolving]
  - Intestinal obstruction [Unknown]
  - Gastroenteritis radiation [Recovering/Resolving]
  - Vomiting [Recovering/Resolving]
